FAERS Safety Report 10546003 (Version 1)
Quarter: 2014Q4

REPORT INFORMATION
  Report Type: Spontaneous
  Country: US (occurrence: US)
  Receive Date: 20141027
  Receipt Date: 20141027
  Transmission Date: 20150529
  Serious: Yes (Other)
  Sender: FDA-Public Use
  Company Number: US-BAXTER-2014BAX063071

PATIENT
  Age: 40 Year
  Sex: Female

DRUGS (1)
  1. GAMMAGARD LIQUID [Suspect]
     Active Substance: HUMAN IMMUNOGLOBULIN G
     Indication: IMMUNODEFICIENCY COMMON VARIABLE
     Route: 058

REACTIONS (5)
  - Pain in extremity [Recovering/Resolving]
  - General physical health deterioration [Unknown]
  - Memory impairment [Recovering/Resolving]
  - Depression [Unknown]
  - Fatigue [Recovering/Resolving]
